FAERS Safety Report 6779474-7 (Version None)
Quarter: 2010Q2

REPORT INFORMATION
  Report Type: 
  Country: None (occurrence: None)
  Receive Date: 20100618
  Receipt Date: 20100610
  Transmission Date: 20101027
  Serious: Yes (Death)
  Sender: FDA-Public Use
  Company Number: GXKR2010JP06420

PATIENT
  Sex: Female

DRUGS (5)
  1. DOXORUBICIN (NGX) [Suspect]
     Indication: NON-HODGKIN'S LYMPHOMA
     Dosage: UNK
     Route: 065
     Dates: start: 20050801, end: 20060101
  2. VINCRISTINE (NGX) [Suspect]
     Indication: NON-HODGKIN'S LYMPHOMA
     Dosage: UNK
     Route: 065
     Dates: start: 20050801, end: 20060101
  3. PREDNISONE [Suspect]
     Indication: NON-HODGKIN'S LYMPHOMA
     Dosage: UNK
     Route: 065
     Dates: start: 20050801, end: 20060101
  4. RITUXIMAB [Suspect]
     Indication: NON-HODGKIN'S LYMPHOMA
     Dosage: UNK
     Route: 065
     Dates: start: 20050801, end: 20060101
  5. CYCLOPHOSPHAMIDE [Suspect]
     Indication: NON-HODGKIN'S LYMPHOMA
     Dosage: UNK
     Route: 065
     Dates: start: 20050801, end: 20060101

REACTIONS (6)
  - ALANINE AMINOTRANSFERASE INCREASED [None]
  - COAGULOPATHY [None]
  - COMA [None]
  - EXCHANGE BLOOD TRANSFUSION [None]
  - HEPATIC FAILURE [None]
  - HEPATITIS B [None]
